FAERS Safety Report 6254376-3 (Version None)
Quarter: 2009Q3

REPORT INFORMATION
  Report Type: 
  Country: None (occurrence: None)
  Receive Date: 20090701
  Receipt Date: 20090701
  Transmission Date: 20100115
  Serious: Yes (Other)
  Sender: FDA-Public Use
  Company Number: None

PATIENT
  Age: 78 Year
  Sex: Male
  Weight: 76.2043 kg

DRUGS (1)
  1. NEUTRAGARD ADVANCED GEL 1.1% W/W/ SODIUM FLUORIDE PASCAL CO., INC. [Suspect]
     Indication: DENTAL FLUORIDE THERAPY
     Dosage: SIZE OF PEA ON TOOTHBRUSH ONCE DAILY BUCCAL 8-10 DAYS
     Route: 002

REACTIONS (1)
  - TACHYCARDIA [None]
